FAERS Safety Report 7569756-3 (Version None)
Quarter: 2011Q2

REPORT INFORMATION
  Report Type: 
  Country: None (occurrence: None)
  Receive Date: 20110620
  Receipt Date: 20110607
  Transmission Date: 20111010
  Serious: Yes (Hospitalization)
  Sender: FDA-Public Use
  Company Number: JPI-P-015369

PATIENT
  Age: 45 Year
  Sex: Male

DRUGS (3)
  1. XYREM [Suspect]
     Indication: SLEEP DISORDER
     Dosage: 9 GM (4.5 GM,2 IN 1 D),ORAL ; 10 GM (5 GM,2 IN 1 D),ORAL ; (UNSPECIFIED REDUCED DOSE),ORAL
     Route: 048
     Dates: start: 20061116, end: 20071023
  2. XYREM [Suspect]
     Indication: SLEEP DISORDER
     Dosage: 9 GM (4.5 GM,2 IN 1 D),ORAL ; 10 GM (5 GM,2 IN 1 D),ORAL ; (UNSPECIFIED REDUCED DOSE),ORAL
     Route: 048
     Dates: start: 20071024, end: 20110601
  3. XYREM [Suspect]
     Indication: SLEEP DISORDER
     Dosage: 9 GM (4.5 GM,2 IN 1 D),ORAL ; 10 GM (5 GM,2 IN 1 D),ORAL ; (UNSPECIFIED REDUCED DOSE),ORAL
     Route: 048
     Dates: start: 20110601

REACTIONS (9)
  - DEHYDRATION [None]
  - HYPERHIDROSIS [None]
  - INTENTIONAL DRUG MISUSE [None]
  - MAJOR DEPRESSION [None]
  - HYPERTENSION [None]
  - HEART RATE INCREASED [None]
  - CONDITION AGGRAVATED [None]
  - INSOMNIA [None]
  - MENTAL DISORDER [None]
